FAERS Safety Report 13411994 (Version 2)
Quarter: 2017Q4

REPORT INFORMATION
  Report Type: Spontaneous
  Country: US (occurrence: US)
  Receive Date: 20170406
  Receipt Date: 20171123
  Transmission Date: 20180320
  Serious: No
  Sender: FDA-Public Use
  Company Number: US-JNJFOC-20170315385

PATIENT
  Sex: Male

DRUGS (1)
  1. RISPERDAL [Suspect]
     Active Substance: RISPERIDONE
     Indication: PSYCHOTIC DISORDER
     Dosage: VARIOUS DOSES OF 1 MG TWICE DAILY AND 2 MG DAILY
     Route: 048
     Dates: start: 20080205, end: 20090806

REACTIONS (2)
  - Emotional disorder [Unknown]
  - Gynaecomastia [Unknown]
